FAERS Safety Report 4821833-3 (Version None)
Quarter: 2006Q1

REPORT INFORMATION
  Report Type: 
  Country: None (occurrence: None)
  Receive Date: 20051107
  Receipt Date: 20050208
  Transmission Date: 20060701
  Serious: Yes (Other)
  Sender: FDA-Public Use
  Company Number: PHNU2005DE00873

PATIENT
  Age: 74 Year
  Sex: Male

DRUGS (1)
  1. LAMISIL [Suspect]
     Indication: ONYCHOMYCOSIS
     Dosage: 250 MG, QD
     Route: 048
     Dates: start: 20041223, end: 20050127

REACTIONS (8)
  - ANAL HAEMORRHAGE [None]
  - ARTHRALGIA [None]
  - EPISTAXIS [None]
  - INSOMNIA [None]
  - JOINT SWELLING [None]
  - LABORATORY TEST ABNORMAL [None]
  - MOBILITY DECREASED [None]
  - PAIN [None]
